FAERS Safety Report 4887873-3 (Version None)
Quarter: 2006Q1

REPORT INFORMATION
  Report Type: 
  Country: None (occurrence: None)
  Receive Date: 20060123
  Receipt Date: 20051005
  Transmission Date: 20060701
  Serious: Yes (Death)
  Sender: FDA-Public Use
  Company Number: US-MERCK-0510USA04312

PATIENT
  Age: 84 Year
  Sex: Male
  Weight: 82 kg

DRUGS (19)
  1. VIOXX [Suspect]
     Indication: ARTHRITIS
     Route: 048
     Dates: start: 19991201, end: 20030919
  2. ARICEPT [Concomitant]
     Route: 065
  3. METRONIDAZOLE [Concomitant]
     Route: 065
  4. PRILOSEC [Concomitant]
     Route: 065
  5. BIAXIN [Concomitant]
     Route: 065
  6. PRINIVIL [Concomitant]
     Route: 065
  7. ALLEGRA [Concomitant]
     Route: 065
  8. COZAAR [Concomitant]
     Route: 065
  9. TRIAMCINOLONE [Concomitant]
     Route: 065
  10. DIAZEPAM [Concomitant]
     Route: 065
  11. HYDROCODONE BITARTRATE + ACETAMINOPHEN [Concomitant]
     Route: 065
  12. HYDROCHLOROTHIAZIDE [Concomitant]
     Route: 065
  13. CELEXA [Concomitant]
     Route: 065
  14. RISPERDAL [Concomitant]
     Route: 065
  15. EXELON [Concomitant]
     Route: 065
  16. FUROSEMIDE [Concomitant]
     Route: 065
  17. BACTROBAN [Concomitant]
     Route: 065
  18. CEPHALEXIN [Concomitant]
     Route: 065
  19. SILVER [Concomitant]
     Route: 065

REACTIONS (2)
  - CARDIAC FAILURE CONGESTIVE [None]
  - SKIN ULCER [None]
